FAERS Safety Report 13384958 (Version 1)
Quarter: 2017Q1

REPORT INFORMATION
  Report Type: Spontaneous
  Country: US (occurrence: US)
  Receive Date: 20170330
  Receipt Date: 20170330
  Transmission Date: 20170429
  Serious: Yes (Other)
  Sender: FDA-Public Use
  Company Number: None

PATIENT
  Age: 80 Year
  Sex: Female
  Weight: 63.56 kg

DRUGS (2)
  1. VITAMIN D [Concomitant]
     Active Substance: CHOLECALCIFEROL
  2. COREG [Suspect]
     Active Substance: CARVEDILOL
     Indication: HYPERTENSION
     Dosage: QUANTITY:PILL RID; 3.25 AM, 3.25 PM?
     Route: 048
     Dates: start: 20070328, end: 20170202

REACTIONS (5)
  - Dizziness [None]
  - Agoraphobia [None]
  - Feeling abnormal [None]
  - Phobia of driving [None]
  - Blood pressure decreased [None]

NARRATIVE: CASE EVENT DATE: 20170226
